FAERS Safety Report 7020870-0 (Version None)
Quarter: 2010Q3

REPORT INFORMATION
  Report Type: 
  Country: None (occurrence: None)
  Receive Date: 20100929
  Receipt Date: 20100920
  Transmission Date: 20110219
  Serious: Yes (Hospitalization)
  Sender: FDA-Public Use
  Company Number: FR-PFIZER INC-2010100950

PATIENT
  Age: 20 Year
  Sex: Female

DRUGS (9)
  1. ATARAX [Suspect]
     Dosage: 25 MG, UNK
     Route: 048
     Dates: start: 20100610, end: 20100701
  2. LOPRESSOR [Suspect]
     Indication: MIGRAINE
     Dosage: UNK
     Route: 048
     Dates: start: 20100301, end: 20100101
  3. LOPRESSOR [Suspect]
     Dosage: UNK
     Route: 048
     Dates: start: 20100607, end: 20100629
  4. LOPRESSOR [Suspect]
     Route: 048
  5. AERIUS [Suspect]
     Indication: HYPERSENSITIVITY
     Dosage: UNK
     Route: 048
     Dates: start: 20100401, end: 20100630
  6. MEXITIL [Suspect]
     Indication: MYOTONIA
     Dosage: UNK
     Route: 048
     Dates: start: 20100512, end: 20100629
  7. MEXITIL [Suspect]
     Route: 048
  8. ZOMIG [Concomitant]
     Indication: MIGRAINE
     Dosage: UNK
     Dates: start: 20050101
  9. MAXALT [Concomitant]
     Indication: MIGRAINE
     Dosage: UNK
     Dates: start: 20090101

REACTIONS (1)
  - DYSPNOEA EXERTIONAL [None]
